FAERS Safety Report 8608141 (Version 2)
Quarter: 2013Q2

REPORT INFORMATION
  Report Type: Spontaneous
  Country: US (occurrence: US)
  Receive Date: 20120611
  Receipt Date: 20130618
  Transmission Date: 20140414
  Serious: Yes (Hospitalization, Other)
  Sender: FDA-Public Use
  Company Number: US-ASTRAZENECA-2012SE35601

PATIENT
  Age: 18236 Day
  Sex: Male

DRUGS (26)
  1. NEXIUM [Suspect]
     Indication: GASTROOESOPHAGEAL REFLUX DISEASE
     Route: 048
     Dates: start: 20060201, end: 20100602
  2. NEXIUM [Suspect]
     Indication: HYPERCHLORHYDRIA
     Route: 048
     Dates: start: 20060201, end: 20100602
  3. NEXIUM [Suspect]
     Indication: DYSPEPSIA
     Route: 048
     Dates: start: 20060201, end: 20100602
  4. OMEPRAZOLE [Suspect]
     Indication: HYPERCHLORHYDRIA
     Route: 048
     Dates: start: 20080304, end: 2011
  5. OMEPRAZOLE [Suspect]
     Indication: DYSPEPSIA
     Route: 048
     Dates: start: 20080304, end: 2011
  6. ZANTAC [Concomitant]
     Dosage: ONCE DAILY AS NEEDED
  7. TUMS [Concomitant]
     Indication: DYSPEPSIA
     Dosage: RARELY
  8. METANX [Concomitant]
     Dates: start: 20080304
  9. METHYLPHENIDATE [Concomitant]
     Dates: start: 20130116
  10. MINOCYCLINE [Concomitant]
     Dates: start: 20101016
  11. NUCYNTA [Concomitant]
     Dates: start: 20110127
  12. PIROXICAM [Concomitant]
     Dates: start: 20060109
  13. PYRIDOSTIGMINE BR [Concomitant]
     Dates: start: 20060214
  14. SEROQUEL [Concomitant]
     Dates: start: 20101016
  15. ABILIFY [Concomitant]
     Dates: start: 20081107
  16. ACTONEL [Concomitant]
     Dates: start: 20060505
  17. ALPRAZOLAM [Concomitant]
     Dates: start: 20060705
  18. BYSTOLIC [Concomitant]
     Dates: start: 20110701
  19. CYMBALTA [Concomitant]
     Dates: start: 20060126
  20. CRESTOR [Concomitant]
     Dates: start: 20060126
  21. DIOVAN HCT [Concomitant]
     Dosage: 160/12.5MG
     Dates: start: 20060201
  22. FLUOXETINE HCL [Concomitant]
     Dates: start: 20071009
  23. GABAPENTIN [Concomitant]
     Dates: start: 20060126
  24. LEVAQUIN [Concomitant]
     Dates: start: 20060618
  25. LYRICA [Concomitant]
     Dates: start: 20130301
  26. MEPERIDINE [Concomitant]
     Dates: start: 20120110

REACTIONS (12)
  - Convulsion [Unknown]
  - Humerus fracture [Unknown]
  - Squamous cell carcinoma [Unknown]
  - Arthropathy [Unknown]
  - Osteoporosis [Unknown]
  - Upper limb fracture [Unknown]
  - Bone disorder [Unknown]
  - Bone pain [Unknown]
  - Cataract [Unknown]
  - Vitamin D deficiency [Unknown]
  - Fracture delayed union [Unknown]
  - Depression [Unknown]
